FAERS Safety Report 7625838-9 (Version None)
Quarter: 2011Q3

REPORT INFORMATION
  Report Type: 
  Country: None (occurrence: None)
  Receive Date: 20110721
  Receipt Date: 20110719
  Transmission Date: 20111222
  Serious: Yes (Other)
  Sender: FDA-Public Use
  Company Number: US-PFIZER INC-2011164050

PATIENT
  Sex: Female

DRUGS (3)
  1. DIAZEPAM [Concomitant]
     Indication: CONVULSION
     Dosage: UNK
  2. DILANTIN [Suspect]
     Indication: CONVULSION
     Dosage: 330 MG, 1X/DAY
     Route: 048
     Dates: start: 19810101
  3. CLONAZEPAM [Concomitant]
     Dosage: UNK

REACTIONS (2)
  - CONVULSION [None]
  - DRUG EFFECT DECREASED [None]
